FAERS Safety Report 7865055-0 (Version None)
Quarter: 2011Q4

REPORT INFORMATION
  Report Type: 
  Country: None (occurrence: None)
  Receive Date: 20111028
  Receipt Date: 20101001
  Transmission Date: 20120403
  Serious: No
  Sender: FDA-Public Use
  Company Number: US-GLAXOSMITHKLINE-A0885308A

PATIENT
  Age: 64 Year
  Sex: Female

DRUGS (9)
  1. PRAVASTATIN [Concomitant]
  2. PARAFON FORTE [Concomitant]
  3. MOBIC [Concomitant]
  4. PRISTIQ [Concomitant]
  5. NUVIGIL [Concomitant]
  6. CLONAZEPAM [Concomitant]
  7. ADVAIR DISKUS 100/50 [Suspect]
     Indication: ASTHMA
     Dosage: 2PUFF PER DAY
     Route: 055
  8. LEXAPRO [Concomitant]
  9. SYNTHROID [Concomitant]

REACTIONS (1)
  - TOOTH DISCOLOURATION [None]
